FAERS Safety Report 7111529-X (Version None)
Quarter: 2010Q4

REPORT INFORMATION
  Report Type: 
  Country: None (occurrence: None)
  Receive Date: 20101118
  Receipt Date: 20101108
  Transmission Date: 20110411
  Serious: Yes (Other)
  Sender: FDA-Public Use
  Company Number: IN-ROCHE-742634

PATIENT

DRUGS (2)
  1. PEGINTERFERON ALFA-2A [Suspect]
     Route: 065
  2. RIBAVIRIN [Suspect]
     Route: 065

REACTIONS (1)
  - NEPHROTIC SYNDROME [None]
